FAERS Safety Report 8501056-7 (Version None)
Quarter: 2012Q3

REPORT INFORMATION
  Report Type: 
  Country: None (occurrence: None)
  Receive Date: 20120710
  Receipt Date: 20120629
  Transmission Date: 20120928
  Serious: No
  Sender: FDA-Public Use
  Company Number: BR-JNJFOC-20120700908

PATIENT
  Sex: Female
  Weight: 65 kg

DRUGS (4)
  1. REMICADE [Suspect]
     Route: 042
     Dates: start: 20120618
  2. PREDNISONE [Concomitant]
     Indication: RHEUMATOID ARTHRITIS
     Route: 065
     Dates: start: 20090101
  3. REMICADE [Suspect]
     Indication: RHEUMATOID ARTHRITIS
     Route: 042
     Dates: start: 20120101
  4. REMICADE [Suspect]
     Route: 042
     Dates: start: 20100101

REACTIONS (2)
  - INFUSION RELATED REACTION [None]
  - INFLUENZA [None]
